FAERS Safety Report 10923616 (Version 2)
Quarter: 2015Q2

REPORT INFORMATION
  Report Type: Spontaneous
  Country: US (occurrence: US)
  Receive Date: 20150318
  Receipt Date: 20150526
  Transmission Date: 20150821
  Serious: No
  Sender: FDA-Public Use
  Company Number: US-JNJFOC-20140613430

PATIENT
  Age: 64 Year
  Sex: Male

DRUGS (2)
  1. HALOPERIDOL. [Suspect]
     Active Substance: HALOPERIDOL
     Indication: DELIRIUM
     Dosage: UP TO 20 MG A DAY
     Route: 042
  2. HALOPERIDOL. [Suspect]
     Active Substance: HALOPERIDOL
     Indication: AGITATION
     Dosage: UP TO 20 MG A DAY
     Route: 042

REACTIONS (3)
  - Incorrect route of drug administration [Unknown]
  - Akathisia [Recovered/Resolved]
  - Drug ineffective [Unknown]
